FAERS Safety Report 15145507 (Version 2)
Quarter: 2018Q4

REPORT INFORMATION
  Report Type: Other
  Country: US (occurrence: US)
  Receive Date: 20180713
  Receipt Date: 20180730
  Transmission Date: 20190204
  Serious: Yes (Other)
  Sender: FDA-Public Use
  Company Number: US-BD MEDICAL-2051996

PATIENT

DRUGS (1)
  1. BD E-Z SCRUB (POVIDONE-IODINE) [Suspect]
     Active Substance: POVIDONE-IODINE

REACTIONS (1)
  - Application site burn [Unknown]
